FAERS Safety Report 6997941-8 (Version None)
Quarter: 2010Q3

REPORT INFORMATION
  Report Type: 
  Country: None (occurrence: None)
  Receive Date: 20100902
  Receipt Date: 20100122
  Transmission Date: 20110219
  Serious: Yes (Hospitalization)
  Sender: FDA-Public Use
  Company Number: US-001427

PATIENT
  Sex: Male
  Weight: 74.8435 kg

DRUGS (4)
  1. NOVAREL (2000 IU, 2000 IU) (NOT SPECIFIED) [Suspect]
     Dosage: (2000 IU 3X/WEEK INTRAMUSCULAR), (2000 IU 3X/WEEK INTRAMUSCULAR)
     Route: 030
     Dates: start: 20070301, end: 20081201
  2. NOVAREL (2000 IU, 2000 IU) (NOT SPECIFIED) [Suspect]
     Dosage: (2000 IU 3X/WEEK INTRAMUSCULAR), (2000 IU 3X/WEEK INTRAMUSCULAR)
     Route: 030
     Dates: start: 20090701
  3. REPRONEX [Suspect]
     Dosage: (75 IU 3X/WEEK INTRAMUSCULAR), (75 IU 3X/WEEK INTRAMUSCULAR)
     Route: 030
     Dates: start: 20070301, end: 20081201
  4. REPRONEX [Suspect]
     Dosage: (75 IU 3X/WEEK INTRAMUSCULAR), (75 IU 3X/WEEK INTRAMUSCULAR)
     Route: 030
     Dates: start: 20090701

REACTIONS (4)
  - DIZZINESS [None]
  - DYSPNOEA [None]
  - NAUSEA [None]
  - PALPITATIONS [None]
